FAERS Safety Report 10707960 (Version 1)
Quarter: 2015Q1

REPORT INFORMATION
  Report Type: Spontaneous
  Country: JP (occurrence: JP)
  Receive Date: 20150113
  Receipt Date: 20150113
  Transmission Date: 20150721
  Serious: Yes (Hospitalization)
  Sender: FDA-Public Use
  Company Number: JP-SA-2015SA001139

PATIENT
  Age: 72 Year
  Sex: Male

DRUGS (20)
  1. CAPECITABINE. [Suspect]
     Active Substance: CAPECITABINE
     Indication: METASTATIC GASTRIC CANCER
     Dosage: D1-D14
     Route: 048
     Dates: start: 20081016
  2. CISPLATIN. [Suspect]
     Active Substance: CISPLATIN
     Indication: METASTATIC GASTRIC CANCER
     Route: 042
     Dates: start: 20080715, end: 20080804
  3. ZOLPIDEM [Concomitant]
     Active Substance: ZOLPIDEM\ZOLPIDEM TARTRATE
  4. CAPECITABINE. [Suspect]
     Active Substance: CAPECITABINE
     Indication: METASTATIC GASTRIC CANCER
     Dosage: D1-D14 BID Q3W?DOSAGE REPORTED AS 2300 MG/DAY
     Route: 048
     Dates: start: 20080804
  5. DOCETAXEL. [Suspect]
     Active Substance: DOCETAXEL
     Route: 065
     Dates: start: 20090522
  6. PLACEBO [Suspect]
     Active Substance: UNSPECIFIED INGREDIENT
     Indication: METASTATIC GASTRIC CANCER
     Dosage: FORM: INFUSION
     Route: 042
     Dates: start: 20080715, end: 20090507
  7. CAPECITABINE. [Suspect]
     Active Substance: CAPECITABINE
     Indication: METASTATIC GASTRIC CANCER
     Dosage: D1-D14
     Route: 048
     Dates: start: 20080925
  8. BROMHEXINE [Concomitant]
     Active Substance: BROMHEXINE
  9. CISPLATIN. [Suspect]
     Active Substance: CISPLATIN
     Indication: METASTATIC GASTRIC CANCER
     Route: 065
     Dates: start: 20081015
  10. MAGNESIUM OXIDE. [Concomitant]
     Active Substance: MAGNESIUM OXIDE
  11. CISPLATIN. [Suspect]
     Active Substance: CISPLATIN
     Indication: METASTATIC GASTRIC CANCER
     Route: 065
     Dates: start: 20081106, end: 20090507
  12. CISPLATIN. [Suspect]
     Active Substance: CISPLATIN
     Indication: METASTATIC GASTRIC CANCER
     Route: 042
     Dates: start: 20080925
  13. NAFTOPIDIL [Concomitant]
     Active Substance: NAFTOPIDIL
  14. LORMETAZEPAM [Concomitant]
     Active Substance: LORMETAZEPAM
  15. OXYCODONE HYDROCHLORIDE. [Concomitant]
     Active Substance: OXYCODONE HYDROCHLORIDE
  16. SULPIRIDE [Concomitant]
     Active Substance: SULPIRIDE
  17. CAPECITABINE. [Suspect]
     Active Substance: CAPECITABINE
     Indication: METASTATIC GASTRIC CANCER
     Dosage: D1-D14 BID Q3W?DOSAGE REPORTED AS 3000 MG/DAY
     Route: 048
     Dates: start: 20080715, end: 20080719
  18. CAPECITABINE. [Suspect]
     Active Substance: CAPECITABINE
     Indication: METASTATIC GASTRIC CANCER
     Dosage: D1-D14
     Route: 048
     Dates: start: 20081106, end: 20090507
  19. CAPECITABINE. [Suspect]
     Active Substance: CAPECITABINE
     Indication: METASTATIC GASTRIC CANCER
     Dosage: D1-D14 BID Q3W?DOSAGE REPORTED AS 2300 MG/DAY
     Route: 048
     Dates: start: 20080826
  20. OMEPRAZOLE. [Concomitant]
     Active Substance: OMEPRAZOLE

REACTIONS (2)
  - Lung abscess [Unknown]
  - Pneumonia aspiration [Recovered/Resolved]

NARRATIVE: CASE EVENT DATE: 20090623
